FAERS Safety Report 16358791 (Version 2)
Quarter: 2020Q4

REPORT INFORMATION
  Report Type: Spontaneous
  Country: HR (occurrence: HR)
  Receive Date: 20190527
  Receipt Date: 20201026
  Transmission Date: 20210113
  Serious: Yes (Other)
  Sender: FDA-Public Use
  Company Number: PHHY2019HR116258

PATIENT
  Sex: Female

DRUGS (4)
  1. KLAVOCIN [Suspect]
     Active Substance: AMOXICILLIN\CLAVULANIC ACID
     Indication: PRODUCT USED FOR UNKNOWN INDICATION
     Dosage: 10 DF, UNK ( BID) (1 DF = 125 MG CLAVULANATE POTASSIUM + 875 MG AMOXICILLIN TRIHYDRATE )
     Route: 048
     Dates: start: 20181224, end: 20181224
  2. AMLODIPINE [Suspect]
     Active Substance: AMLODIPINE BESYLATE
     Indication: PRODUCT USED FOR UNKNOWN INDICATION
     Dosage: 28 DF
     Route: 048
     Dates: start: 20181224, end: 20181224
  3. CARVEDILOL. [Suspect]
     Active Substance: CARVEDILOL
     Indication: PRODUCT USED FOR UNKNOWN INDICATION
     Dosage: 42DF
     Route: 048
     Dates: start: 20181224, end: 20181224
  4. COUPET [Suspect]
     Active Substance: ROSUVASTATIN CALCIUM
     Indication: PRODUCT USED FOR UNKNOWN INDICATION
     Dosage: 20 DF
     Route: 048
     Dates: start: 20181224, end: 20181224

REACTIONS (3)
  - Intentional overdose [Unknown]
  - Hypotension [Unknown]
  - Suicide attempt [Unknown]

NARRATIVE: CASE EVENT DATE: 201812
